FAERS Safety Report 9276732 (Version 1)
Quarter: 2013Q2

REPORT INFORMATION
  Report Type: Spontaneous
  Country: US (occurrence: US)
  Receive Date: 20130507
  Receipt Date: 20130507
  Transmission Date: 20140414
  Serious: Yes (Other)
  Sender: FDA-Public Use
  Company Number: US-TARO-2013P1005258

PATIENT
  Sex: Male

DRUGS (1)
  1. WARFARIN [Suspect]

REACTIONS (2)
  - Gastrointestinal haemorrhage [Unknown]
  - Product substitution issue [Unknown]
